FAERS Safety Report 5410959-1 (Version None)
Quarter: 2007Q3

REPORT INFORMATION
  Report Type: 
  Country: None (occurrence: None)
  Receive Date: 20070810
  Receipt Date: 20070803
  Transmission Date: 20080115
  Serious: Yes (Death, Life-Threatening)
  Sender: FDA-Public Use
  Company Number: DE-ABBOTT-07P-062-0376762-00

PATIENT
  Sex: Female
  Weight: 39 kg

DRUGS (6)
  1. KALETRA [Suspect]
     Indication: HIV INFECTION
     Route: 048
     Dates: start: 20070525, end: 20070712
  2. TRUVADA [Concomitant]
     Indication: HIV INFECTION
     Route: 048
     Dates: start: 20070525, end: 20070712
  3. CYCLOPHOSPHAMIDE [Concomitant]
     Indication: NON-HODGKIN'S LYMPHOMA
     Dates: end: 20070712
  4. DOXORUBICIN [Concomitant]
     Indication: NON-HODGKIN'S LYMPHOMA
     Dates: end: 20070712
  5. VINCRISTINE [Concomitant]
     Indication: NON-HODGKIN'S LYMPHOMA
     Dates: end: 20070712
  6. PREDNISONE TAB [Concomitant]
     Indication: NON-HODGKIN'S LYMPHOMA
     Dates: end: 20070712

REACTIONS (4)
  - CACHEXIA [None]
  - CD4 LYMPHOCYTES DECREASED [None]
  - INFECTION [None]
  - NAUSEA [None]
